FAERS Safety Report 23676618 (Version 1)
Quarter: 2024Q1

REPORT INFORMATION
  Report Type: Report from Study
  Country: MX (occurrence: MX)
  Receive Date: 20240327
  Receipt Date: 20240327
  Transmission Date: 20240410
  Serious: Yes (Other)
  Sender: FDA-Public Use
  Company Number: MX-AstraZeneca-2023A180798

PATIENT
  Age: 92 Day
  Sex: Female
  Weight: 8.8 kg

DRUGS (9)
  1. SYNAGIS [Suspect]
     Active Substance: PALIVIZUMAB
     Indication: Antiviral prophylaxis
     Dosage: 0.65 ML, MONTHLY?MEDICATION ERROR , PALIVIZUMAB: 100.0MG/ML
     Route: 030
     Dates: start: 20221216, end: 20221216
  2. SYNAGIS [Suspect]
     Active Substance: PALIVIZUMAB
     Dosage: 0.7 ML, MONTHLY?MEDICATION ERROR, PALIVIZUMAB: 100.0MG/ML
     Route: 030
     Dates: start: 20230113, end: 20230113
  3. SYNAGIS [Suspect]
     Active Substance: PALIVIZUMAB
     Dosage: 1.1 ML, MONTHLY?MEDICATION ERROR , PALIVIZUMAB: 100.0MG/ML
     Route: 030
     Dates: start: 20230804, end: 20230804
  4. SYNAGIS [Suspect]
     Active Substance: PALIVIZUMAB
     Dosage: 1.1 ML, MONTHLY?MEDICATION ERROR, PALIVIZUMAB: 100.0MG/ML
     Route: 030
     Dates: start: 20230901, end: 20230901
  5. SYNAGIS [Suspect]
     Active Substance: PALIVIZUMAB
     Dosage: 1.13 ML, MONTHLY?MEDICATION ERROR , PALIVIZUMAB: 100.0MG/ML
     Route: 030
     Dates: start: 20231006, end: 20231006
  6. SYNAGIS [Suspect]
     Active Substance: PALIVIZUMAB
     Dosage: 1 ML, MONTHLY?MEDICATION ERROR , PALIVIZUMAB: 100.0MG/ML
     Route: 030
     Dates: start: 20231117, end: 20231117
  7. SYNAGIS [Suspect]
     Active Substance: PALIVIZUMAB
     Dosage: 1.2 ML, MONTHLY?MEDICATION ERROR , PALIVIZUMAB: 100.0MG/ML
     Route: 030
     Dates: start: 20231208, end: 20231208
  8. SYNAGIS [Suspect]
     Active Substance: PALIVIZUMAB
     Dosage: 1.2 ML, MONTHLY?MEDICATION ERROR , PALIVIZUMAB: 100.0MG/ML
     Route: 030
     Dates: start: 20240119, end: 20240119
  9. SYNAGIS [Suspect]
     Active Substance: PALIVIZUMAB
     Dosage: 1.3 ML, MONTHLY?MEDICATION ERROR , PALIVIZUMAB: 100.0MG/ML
     Route: 030
     Dates: start: 20240216, end: 20240216

REACTIONS (16)
  - Dyspnoea [Recovered/Resolved]
  - Cough [Recovered/Resolved]
  - Productive cough [Recovered/Resolved]
  - Influenza [Recovered/Resolved]
  - Rhinitis [Recovered/Resolved]
  - Secretion discharge [Recovered/Resolved]
  - Sneezing [Recovered/Resolved]
  - Hypersensitivity [Recovered/Resolved]
  - Inappropriate schedule of product administration [Recovered/Resolved]
  - Product administration error [Recovered/Resolved]
  - Secretion discharge [Recovered/Resolved]
  - Wheezing [Recovered/Resolved]
  - Viral infection [Recovered/Resolved]
  - Dose calculation error [Unknown]
  - Crying [Recovered/Resolved]
  - Therapeutic response unexpected [Recovered/Resolved]

NARRATIVE: CASE EVENT DATE: 20230101
